FAERS Safety Report 4332680-3 (Version None)
Quarter: 2004Q1

REPORT INFORMATION
  Report Type: 
  Country: None (occurrence: None)
  Receive Date: 20040330
  Receipt Date: 20040316
  Transmission Date: 20041129
  Serious: Yes (Other)
  Sender: FDA-Public Use
  Company Number: US-JNJFOC-20040302972

PATIENT
  Age: 61 Year
  Sex: Female
  Weight: 99.7913 kg

DRUGS (3)
  1. REMICADE [Suspect]
     Indication: RHEUMATOID ARTHRITIS
     Dosage: 450 MG, INTRAVENOUS
     Route: 042
     Dates: start: 20000101
  2. REMICADE [Suspect]
     Indication: RHEUMATOID ARTHRITIS
     Dosage: 450 MG, INTRAVENOUS
     Route: 042
     Dates: start: 20040107
  3. PREDNISONE [Concomitant]

REACTIONS (3)
  - DISEASE PROGRESSION [None]
  - MYCOSIS FUNGOIDES [None]
  - T-CELL LYMPHOMA [None]
